FAERS Safety Report 16299987 (Version 1)
Quarter: 2019Q2

REPORT INFORMATION
  Report Type: Spontaneous
  Country: MX (occurrence: MX)
  Receive Date: 20190510
  Receipt Date: 20190510
  Transmission Date: 20190711
  Serious: Yes (Other)
  Sender: FDA-Public Use
  Company Number: MX-ASTRAZENECA-2019SE69499

PATIENT
  Age: 49 Year
  Sex: Male
  Weight: 86 kg

DRUGS (8)
  1. TECTA [Concomitant]
     Active Substance: PANTOPRAZOLE MAGNESIUM
     Indication: COLITIS
     Route: 048
     Dates: start: 201901, end: 201902
  2. SUCRALFATE. [Concomitant]
     Active Substance: SUCRALFATE
     Indication: COLITIS
     Route: 048
     Dates: start: 201901, end: 201901
  3. CONTROLIP [Concomitant]
     Active Substance: FENOFIBRATE
     Indication: BLOOD CHOLESTEROL INCREASED
     Route: 048
     Dates: start: 2017
  4. CRESTOR [Suspect]
     Active Substance: ROSUVASTATIN CALCIUM
     Indication: BLOOD CHOLESTEROL INCREASED
     Route: 048
     Dates: start: 2017
  5. HELICOBLIS [Concomitant]
     Indication: COLITIS
     Dosage: DAILY
     Route: 048
     Dates: start: 201901, end: 201901
  6. LIBERTRIM [Concomitant]
     Active Substance: TRIMEBUTINE
     Indication: IRRITABLE BOWEL SYNDROME
     Dosage: AS REQUIRED
     Route: 048
     Dates: start: 2018
  7. FIRAC PLUS [Concomitant]
     Indication: IRRITABLE BOWEL SYNDROME
     Dosage: 20.0MG AS REQUIRED
     Route: 048
     Dates: start: 2018
  8. FLORATIL [Concomitant]
     Indication: COLITIS
     Route: 048
     Dates: start: 201901, end: 201901

REACTIONS (7)
  - Colitis [Unknown]
  - Overweight [Unknown]
  - Irritable bowel syndrome [Not Recovered/Not Resolved]
  - Cholelithiasis [Recovered/Resolved]
  - Helicobacter infection [Recovered/Resolved]
  - Drug interaction [Unknown]
  - Diverticulitis [Unknown]

NARRATIVE: CASE EVENT DATE: 2018
